FAERS Safety Report 21915317 (Version 2)
Quarter: 2023Q1

REPORT INFORMATION
  Report Type: Spontaneous
  Country: AU (occurrence: AU)
  Receive Date: 20230126
  Receipt Date: 20230130
  Transmission Date: 20230418
  Serious: Yes (Other)
  Sender: FDA-Public Use
  Company Number: AU-SA-2023SA011030

PATIENT
  Age: 36 Year
  Sex: Male

DRUGS (4)
  1. RIFAMPIN [Suspect]
     Active Substance: RIFAMPIN
     Indication: Tuberculosis
     Dosage: UNK
  2. ISONIAZID [Suspect]
     Active Substance: ISONIAZID
     Indication: Tuberculosis
     Dosage: UNK
  3. PYRIDOXINE [Suspect]
     Active Substance: PYRIDOXINE
     Indication: Tuberculosis
     Dosage: UNK
  4. MOXIFLOXACIN HYDROCHLORIDE [Suspect]
     Active Substance: MOXIFLOXACIN HYDROCHLORIDE
     Indication: Tuberculosis
     Dosage: UNK

REACTIONS (3)
  - Choroiditis [Recovered/Resolved]
  - Infection reactivation [Recovered/Resolved]
  - Inflammation [Recovered/Resolved]
